FAERS Safety Report 6382381-5 (Version None)
Quarter: 2009Q3

REPORT INFORMATION
  Report Type: 
  Country: None (occurrence: None)
  Receive Date: 20090925
  Receipt Date: 20090918
  Transmission Date: 20100115
  Serious: No
  Sender: FDA-Public Use
  Company Number: 384210

PATIENT
  Age: 58 Year
  Sex: Female
  Weight: 54 kg

DRUGS (3)
  1. BUPIVACAINE [Suspect]
     Indication: LOCAL ANAESTHESIA
     Dosage: 450 ML AT A RATE OF 3 ML/H, EXTRAPLEURAL, OTHER
  2. AMLODIPINE [Concomitant]
  3. (ANESTHETICS, GENERAL) [Concomitant]

REACTIONS (3)
  - DEVICE LEAKAGE [None]
  - HORNER'S SYNDROME [None]
  - POST PROCEDURAL COMPLICATION [None]
